FAERS Safety Report 9416798 (Version 1)
Quarter: 2013Q3

REPORT INFORMATION
  Report Type: Spontaneous
  Country: US (occurrence: US)
  Receive Date: 20130724
  Receipt Date: 20130724
  Transmission Date: 20140515
  Serious: No
  Sender: FDA-Public Use
  Company Number: US-GALDERMA-US13000904

PATIENT
  Age: 77 Year
  Sex: Female
  Weight: 52 kg

DRUGS (29)
  1. ORACEA (DOXYCYCLINE, USP) CAPSULES 40 MG [Suspect]
     Indication: ROSACEA
     Route: 048
     Dates: start: 20130302
  2. ORACEA (DOXYCYCLINE, USP) CAPSULES 40 MG [Suspect]
     Route: 048
     Dates: start: 2010, end: 2010
  3. METROGEL  (METRONIDAZOLE) GEL, 1% [Concomitant]
     Indication: ROSACEA
     Route: 061
  4. CETAPHIL GENTLE SKIN CLEANSER [Concomitant]
     Indication: THERAPEUTIC SKIN CARE TOPICAL
     Route: 061
  5. CETAPHIL DAILY ADVANCE ULTRA HYDRATING LOTION [Concomitant]
     Indication: DRY SKIN PROPHYLAXIS
     Route: 061
  6. PROBIOTIC [Concomitant]
     Route: 048
  7. CALCIUM CITRATE [Concomitant]
     Route: 048
  8. ZINC [Concomitant]
     Route: 048
  9. POTASSIUM [Concomitant]
     Route: 048
  10. MULTIVITAMIN WITHOUT IRON [Concomitant]
     Route: 048
  11. LYSINE [Concomitant]
     Route: 048
  12. COENZYME Q 10 [Concomitant]
     Route: 048
  13. METHYLSULFONYMETHANE [Concomitant]
     Route: 048
  14. BIOIDENTICAL HORMONES [Concomitant]
     Route: 048
  15. HYDROXYUREA [Concomitant]
     Route: 048
  16. ACYCLOVIR [Concomitant]
     Indication: HERPES SIMPLEX
     Route: 048
  17. PAXIL [Concomitant]
     Route: 048
  18. SILICA [Concomitant]
     Route: 048
  19. BORON [Concomitant]
     Route: 048
  20. BIOTIN [Concomitant]
     Route: 048
  21. LUTEIN [Concomitant]
     Route: 048
  22. GLUCOSAMINE [Concomitant]
     Route: 048
  23. CHONDROITIN [Concomitant]
     Route: 048
  24. OMEGA 3 FATTY ACIDS [Concomitant]
     Route: 048
  25. MUSHROOM [Concomitant]
     Route: 048
  26. VITAMIN C [Concomitant]
     Route: 048
  27. BETACAROTINE [Concomitant]
     Dosage: 1000 MG
     Route: 048
  28. VITAMIN B [Concomitant]
     Route: 048
  29. COSMETICS [Concomitant]

REACTIONS (4)
  - Frequent bowel movements [Recovering/Resolving]
  - Flatulence [Recovering/Resolving]
  - Diarrhoea [Recovering/Resolving]
  - Drug ineffective [Recovering/Resolving]
